FAERS Safety Report 6834473-1 (Version None)
Quarter: 2010Q3

REPORT INFORMATION
  Report Type: 
  Country: None (occurrence: None)
  Receive Date: 20100712
  Receipt Date: 20070411
  Transmission Date: 20110219
  Serious: No
  Sender: FDA-Public Use
  Company Number: US-PFIZER INC-2007031179

PATIENT
  Sex: Female
  Weight: 68.04 kg

DRUGS (4)
  1. CHANTIX [Suspect]
     Indication: SMOKING CESSATION THERAPY
     Route: 048
     Dates: start: 20070406
  2. DICLOFENAC SODIUM [Concomitant]
     Indication: ARTHRITIS
     Route: 048
  3. TYLENOL (CAPLET) [Concomitant]
     Route: 048
  4. CYCLOBENZAPRINE [Concomitant]
     Indication: ARTHRITIS
     Route: 048

REACTIONS (4)
  - ABDOMINAL PAIN UPPER [None]
  - ANXIETY [None]
  - DIARRHOEA [None]
  - FRUSTRATION [None]
